FAERS Safety Report 7803600-1 (Version None)
Quarter: 2011Q4

REPORT INFORMATION
  Report Type: 
  Country: None (occurrence: None)
  Receive Date: 20111009
  Receipt Date: 20111003
  Transmission Date: 20120403
  Serious: Yes (Other)
  Sender: FDA-Public Use
  Company Number: CA-BRISTOL-MYERS SQUIBB COMPANY-16130403

PATIENT
  Age: 50 Year
  Sex: Female

DRUGS (7)
  1. METFORMIN HYDROCHLORIDE [Concomitant]
  2. LEVOTHYROXINE SODIUM [Concomitant]
  3. ORENCIA [Suspect]
     Indication: RHEUMATOID ARTHRITIS
     Dosage: 1 INFUSION
     Route: 042
     Dates: start: 20110930
  4. PERCOCET [Concomitant]
  5. NORVASC [Concomitant]
  6. ARAVA [Concomitant]
  7. TYLENOL-500 [Concomitant]

REACTIONS (3)
  - LOSS OF CONSCIOUSNESS [None]
  - LETHARGY [None]
  - NAUSEA [None]
